FAERS Safety Report 7501227-2 (Version None)
Quarter: 2011Q2

REPORT INFORMATION
  Report Type: 
  Country: None (occurrence: None)
  Receive Date: 20110524
  Receipt Date: 20110510
  Transmission Date: 20111010
  Serious: Yes (Other)
  Sender: FDA-Public Use
  Company Number: US-UCBSA-032502

PATIENT
  Sex: Male

DRUGS (7)
  1. ASCAL [Concomitant]
     Indication: CROHN'S DISEASE
     Route: 064
  2. ACETAMINOPHEN [Concomitant]
     Indication: PAIN
     Dosage: EVERY 4-6 HOURS
     Route: 064
  3. SALINE FLUSH/HEPARIN [Concomitant]
     Indication: CENTRAL VENOUS CATHETERISATION
     Dosage: 100 UNIITS/ML, ONCE DAILY TO KEEP LINE OPEN ;ROUTE 5ML SYRINGE
  4. HYDROMORPHONE HCL [Concomitant]
     Indication: PAIN
     Dosage: 1/2 TABLET EVERY 3HRS
     Route: 064
  5. PROTONIX [Concomitant]
     Route: 064
  6. CIMZIA [Suspect]
     Indication: CROHN'S DISEASE
     Route: 064
  7. PREDNISONE [Concomitant]
     Indication: CROHN'S DISEASE
     Dosage: ONCE A TABLET
     Route: 064

REACTIONS (2)
  - PREMATURE BABY [None]
  - DRUG EXPOSURE DURING PREGNANCY [None]
